FAERS Safety Report 25660803 (Version 1)
Quarter: 2025Q3

REPORT INFORMATION
  Report Type: Spontaneous
  Country: GB (occurrence: GB)
  Receive Date: 20250808
  Receipt Date: 20250808
  Transmission Date: 20251020
  Serious: Yes (Other)
  Sender: MYLAN
  Company Number: GB-MHRA-TPP62341238C22275880YC1754303193434

PATIENT
  Age: 56 Year
  Sex: Male
  Weight: 95 kg

DRUGS (16)
  1. LIPITOR [Suspect]
     Active Substance: ATORVASTATIN CALCIUM
     Indication: Product used for unknown indication
     Dosage: 1 DOSAGE FORM, QD (BEFORE BED)
     Dates: start: 20250715
  2. MOUNJARO [Concomitant]
     Active Substance: TIRZEPATIDE
     Dosage: 1 DOSAGE FORM, QW (ONE INJECTION ONCE WEEKLY)
     Dates: start: 20250716
  3. AMOXICILLIN [Concomitant]
     Active Substance: AMOXICILLIN
     Dosage: 1 DOSAGE FORM, Q8H (TAKE ONE 3 TIMES/DAY)
     Dates: start: 20250724, end: 20250729
  4. CHLORAMPHENICOL [Concomitant]
     Active Substance: CHLORAMPHENICOL
     Dosage: 1 DOSAGE FORM, Q6H (ONE DROP 4 TIMES/DAY)
     Dates: start: 20250801
  5. CINNARIZINE [Concomitant]
     Active Substance: CINNARIZINE
     Dosage: 1 DOSAGE FORM, Q8H (ONE TABLET UP TO THREE TIMES A DAY)
     Dates: start: 20250409
  6. DAPAGLIFLOZIN [Concomitant]
     Active Substance: DAPAGLIFLOZIN
     Dosage: 1 DOSAGE FORM, QD
     Dates: start: 20250409
  7. GLUCOPHAGE [Concomitant]
     Active Substance: METFORMIN HYDROCHLORIDE
     Dosage: 1 DOSAGE FORM, QD (WITH FOOD)
     Dates: start: 20250409
  8. BUTYLSCOPOLAMINE BROMIDE [Concomitant]
     Active Substance: BUTYLSCOPOLAMINE BROMIDE
     Indication: Ill-defined disorder
     Dosage: UNK UNK, QID (ONE OR TWO CAN BE TAKEN UP TO FOUR TIMES A DAY ...)
     Dates: start: 20250409
  9. IBUPROFEN [Concomitant]
     Active Substance: IBUPROFEN
     Indication: Ill-defined disorder
     Dosage: UNK UNK, TID (APPLY UP TO THREE TIMES A DAY FOR SHOULD PAIN A...)
     Dates: start: 20250409
  10. IBUPROFEN [Concomitant]
     Active Substance: IBUPROFEN
     Indication: Arthralgia
  11. OMEPRAZOLE [Concomitant]
     Active Substance: OMEPRAZOLE
     Indication: Ill-defined disorder
     Dosage: 1 DOSAGE FORM, QD (TAKE ONE DAILY FOR NAUSEA AND STOMACH CRAMPS)
     Dates: start: 20250409
  12. OMEPRAZOLE [Concomitant]
     Active Substance: OMEPRAZOLE
     Indication: Nausea
  13. OMEPRAZOLE [Concomitant]
     Active Substance: OMEPRAZOLE
     Indication: Abdominal pain upper
  14. QUININE BISULFATE [Concomitant]
     Active Substance: QUININE BISULFATE
     Indication: Ill-defined disorder
     Dosage: 1 DOSAGE FORM, PM (ONE DAILY AT NIGHT)
     Dates: start: 20250409
  15. SIMVASTATIN [Concomitant]
     Active Substance: SIMVASTATIN
     Indication: Ill-defined disorder
     Dosage: 1 DOSAGE FORM, PM (TAKE ONE AT NIGHT)
     Dates: start: 20250409, end: 20250715
  16. ROSUVASTATIN [Concomitant]
     Active Substance: ROSUVASTATIN
     Indication: Ill-defined disorder
     Dosage: 1 DOSAGE FORM, QW (START WITH ONE TABLET A WEEK FOR 4 WEEKS, THEN ...)
     Dates: start: 20250804

REACTIONS (2)
  - Pharyngeal swelling [Recovered/Resolved]
  - Throat tightness [Recovered/Resolved]
